FAERS Safety Report 9290523 (Version 1)
Quarter: 2013Q2

REPORT INFORMATION
  Report Type: Spontaneous
  Country: CH (occurrence: CH)
  Receive Date: 20130515
  Receipt Date: 20130515
  Transmission Date: 20140414
  Serious: Yes (Hospitalization)
  Sender: FDA-Public Use
  Company Number: CH-PFIZER INC-2013145783

PATIENT
  Age: 85 Year
  Sex: Female
  Weight: 51.6 kg

DRUGS (17)
  1. DALACIN C [Suspect]
     Dosage: UNK
     Dates: start: 20130113, end: 20130116
  2. CLAMOXYL [Suspect]
     Dosage: 1 G, 4X/DAY
     Route: 048
     Dates: start: 20130116, end: 20130123
  3. TAVANIC [Suspect]
     Dosage: 375 MG, 1X/DAY
     Route: 041
     Dates: start: 20130201, end: 20130204
  4. CIPROXIN [Suspect]
     Dosage: UNK
     Dates: start: 20130113, end: 20130116
  5. AMLODIPIN MEPHA [Suspect]
     Dosage: UNK
     Route: 048
     Dates: start: 20130110, end: 20130123
  6. LIQUEMIN [Suspect]
     Dosage: 5000 IU, FREQUENCY UNKNOWN
     Route: 058
     Dates: start: 20130110, end: 20130211
  7. NOVALGIN [Suspect]
     Dosage: 500 MG, FREQUENCY UNKNOWN
     Route: 048
     Dates: start: 20130117, end: 20130118
  8. NOVALGIN [Suspect]
     Dosage: 500 MG, FREQUENCY UNKNOWN
     Route: 048
     Dates: start: 20130129, end: 20130209
  9. ASPIRIN CARDIO [Concomitant]
     Dosage: 100 MG, 1X/DAY
     Route: 048
  10. DANCOR [Concomitant]
     Dosage: 20 MG, 2X/DAY
     Route: 048
  11. CONCOR [Concomitant]
     Dosage: 2.5 MG, 1X/DAY
     Route: 048
  12. ENATEC [Concomitant]
     Dosage: 2.5 MG, 1X/DAY
     Route: 048
  13. NITRODERM [Concomitant]
     Dosage: 1 DF, 1X/DAY
     Route: 061
  14. SORTIS [Concomitant]
     Dosage: 20 MG, 1X/DAY
     Route: 048
  15. MADOPAR [Concomitant]
     Dosage: 125 MG, 2X/DAY
     Route: 048
  16. XANAX [Concomitant]
     Dosage: 0.5 MG, 1X/DAY
     Route: 048
  17. CITALOPRAM [Concomitant]
     Dosage: 20 MG, 1X/DAY
     Route: 048

REACTIONS (3)
  - Cholestatic liver injury [Recovering/Resolving]
  - Hepatic enzyme increased [Recovering/Resolving]
  - Pruritus [Recovered/Resolved]
